FAERS Safety Report 10915956 (Version 1)
Quarter: 2015Q1

REPORT INFORMATION
  Report Type: Spontaneous
  Country: US (occurrence: US)
  Receive Date: 20150316
  Receipt Date: 20150316
  Transmission Date: 20150721
  Serious: Yes (Death, Hospitalization, Other)
  Sender: FDA-Public Use
  Company Number: US-MYLANLABS-2015M1006982

PATIENT

DRUGS (2)
  1. ONDANSETRON [Suspect]
     Active Substance: ONDANSETRON
     Dosage: UNK
     Dates: start: 2013, end: 2013
  2. AMLODIPINE BESYLATE TABLETS, USP [Suspect]
     Active Substance: AMLODIPINE BESYLATE
     Indication: HYPERTENSION
     Dosage: 5 MG, QD
     Route: 048
     Dates: start: 201301

REACTIONS (5)
  - Myocardial infarction [Recovered/Resolved]
  - Sepsis [Unknown]
  - Systemic inflammatory response syndrome [Fatal]
  - Palpitations [Unknown]
  - Rash [Unknown]

NARRATIVE: CASE EVENT DATE: 201301
